FAERS Safety Report 17266319 (Version 1)
Quarter: 2020Q1

REPORT INFORMATION
  Report Type: Report from Study
  Country: CA (occurrence: CA)
  Receive Date: 20200114
  Receipt Date: 20200114
  Transmission Date: 20200409
  Serious: Yes (Other)
  Sender: FDA-Public Use
  Company Number: CA-BEH-2020111535

PATIENT
  Age: 23 Year
  Sex: Male

DRUGS (5)
  1. BERINERT [Suspect]
     Active Substance: HUMAN C1-ESTERASE INHIBITOR
     Indication: HEREDITARY ANGIOEDEMA
     Dosage: 3000 INTERNATIONAL UNIT, EVERY 3 DAYS/ BIW
     Route: 042
  2. BERINERT [Suspect]
     Active Substance: HUMAN C1-ESTERASE INHIBITOR
     Indication: PROPHYLAXIS
     Dosage: 2500 INTERNATIONAL UNITS
     Route: 042
  3. BERINERT [Suspect]
     Active Substance: HUMAN C1-ESTERASE INHIBITOR
     Indication: PROPHYLAXIS
     Dosage: 2500 INTERNATIONAL UNITS
     Route: 042
  4. BERINERT [Suspect]
     Active Substance: HUMAN C1-ESTERASE INHIBITOR
     Indication: HEREDITARY ANGIOEDEMA
     Dosage: 3000 INTERNATIONAL UNIT, EVERY 3 DAYS/ BIW
     Route: 042
  5. DANAZOL. [Concomitant]
     Active Substance: DANAZOL

REACTIONS (4)
  - Drug ineffective for unapproved indication [Unknown]
  - Therapy change [Unknown]
  - Product use in unapproved indication [Unknown]
  - Off label use [Unknown]
